FAERS Safety Report 16573961 (Version 1)
Quarter: 2019Q3

REPORT INFORMATION
  Report Type: Spontaneous
  Country: US (occurrence: US)
  Receive Date: 20190715
  Receipt Date: 20190715
  Transmission Date: 20191004
  Serious: No
  Sender: FDA-Public Use
  Company Number: US-MYLANLABS-2019M1060340

PATIENT
  Sex: Female
  Weight: 68 kg

DRUGS (3)
  1. ACITRETIN CAPSULES USP [Suspect]
     Active Substance: ACITRETIN
     Dosage: 25 MILLIGRAM, QOD
     Route: 048
     Dates: start: 2019
  2. ACITRETIN CAPSULES USP [Suspect]
     Active Substance: ACITRETIN
     Indication: SKIN DISORDER
     Dosage: 1 DOSAGE FORM, QD/ONE CAPSULE A DAY
     Route: 048
     Dates: start: 201902, end: 2019
  3. ACITRETIN CAPSULES USP [Suspect]
     Active Substance: ACITRETIN
     Indication: SKIN DISORDER
     Dosage: 1 DOSAGE FORM, QD

REACTIONS (4)
  - Pruritus generalised [Not Recovered/Not Resolved]
  - Pruritus [Not Recovered/Not Resolved]
  - Alopecia [Not Recovered/Not Resolved]
  - Product use in unapproved indication [Not Recovered/Not Resolved]
